FAERS Safety Report 14147496 (Version 1)
Quarter: 2017Q4

REPORT INFORMATION
  Report Type: Not Available
  Country: GB (occurrence: US)
  Receive Date: 20171101
  Receipt Date: 20171101
  Transmission Date: 20180321
  Serious: No
  Sender: FDA-Public Use
  Company Number: GB-ALKABELLO-2017AA003620

PATIENT
  Sex: Female

DRUGS (1)
  1. HONEY BEE VENOM [Suspect]
     Active Substance: APIS MELLIFERA VENOM
     Indication: INFLAMMATION

REACTIONS (2)
  - Off label use [Unknown]
  - Product use in unapproved indication [Unknown]
